FAERS Safety Report 6710628-1 (Version None)
Quarter: 2010Q2

REPORT INFORMATION
  Report Type: 
  Country: None (occurrence: None)
  Receive Date: 20100504
  Receipt Date: 20100428
  Transmission Date: 20101027
  Serious: Yes (Hospitalization)
  Sender: FDA-Public Use
  Company Number: ES-GENENTECH-295745

PATIENT
  Sex: Male

DRUGS (7)
  1. MABTHERA [Suspect]
     Indication: B-CELL LYMPHOMA
     Dosage: 375 MG/M2, UNK
     Route: 042
     Dates: start: 20091021
  2. PREDNISONE [Suspect]
     Indication: B-CELL LYMPHOMA
     Dosage: 60 MG/M2, UNK
     Route: 042
     Dates: start: 20091021
  3. CYCLOPHOSPHAMIDE [Suspect]
     Indication: B-CELL LYMPHOMA
     Dosage: 750 MG/M2, UNK
     Route: 042
     Dates: start: 20091021
  4. ADRIAMYCIN PFS [Suspect]
     Indication: B-CELL LYMPHOMA
     Dosage: 90 MG/M2, UNK
     Route: 042
     Dates: start: 20091021
  5. VINCRISTINE [Suspect]
     Indication: B-CELL LYMPHOMA
     Dosage: 140 MG/M2, UNK
     Route: 042
     Dates: start: 20091021
  6. ONDANSETRON [Concomitant]
     Indication: B-CELL LYMPHOMA
     Dosage: 6 MG, UNK
     Route: 042
     Dates: start: 20091021
  7. OMEPRAZOLE [Concomitant]
     Indication: B-CELL LYMPHOMA
     Dosage: 20 MG, UNK
     Route: 048

REACTIONS (1)
  - SUBILEUS [None]
